FAERS Safety Report 16155923 (Version 4)
Quarter: 2019Q2

REPORT INFORMATION
  Report Type: Spontaneous
  Country: JP (occurrence: JP)
  Receive Date: 20190404
  Receipt Date: 20190604
  Transmission Date: 20190711
  Serious: Yes (Death, Life-Threatening, Other)
  Sender: FDA-Public Use
  Company Number: JP-BRISTOL-MYERS SQUIBB COMPANY-BMS-2019-031164

PATIENT
  Age: 76 Year
  Sex: Male
  Weight: 60 kg

DRUGS (1)
  1. OPDIVO [Suspect]
     Active Substance: NIVOLUMAB
     Indication: METASTATIC RENAL CELL CARCINOMA
     Dosage: 176.7 MILLIGRAM
     Route: 041
     Dates: start: 20170609, end: 20180903

REACTIONS (6)
  - Drug eruption [Not Recovered/Not Resolved]
  - Malaise [Not Recovered/Not Resolved]
  - Lipase increased [Recovering/Resolving]
  - Herpes zoster [Recovering/Resolving]
  - Cerebral haemorrhage [Not Recovered/Not Resolved]
  - Malignant neoplasm progression [Fatal]

NARRATIVE: CASE EVENT DATE: 20171005
